FAERS Safety Report 5154127-X (Version None)
Quarter: 2006Q4

REPORT INFORMATION
  Report Type: 
  Country: None (occurrence: None)
  Receive Date: 20061116
  Receipt Date: 20061116
  Transmission Date: 20070319
  Serious: Yes (Hospitalization)
  Sender: FDA-Public Use
  Company Number: None

PATIENT
  Age: 62 Year
  Sex: Male
  Weight: 90.7 kg

DRUGS (11)
  1. CIPROFLOXACIN [Suspect]
  2. SIMVASATIN [Concomitant]
  3. ASPIRIN [Concomitant]
  4. LANOXIN [Concomitant]
  5. HYDROXYZINE [Concomitant]
  6. METRONIDAZOLE [Concomitant]
  7. FLUNISOLIDE (NASAL) INHL, NASAL [Concomitant]
  8. SODIUM CHLORIDE SOLN, SPRAY, NASAL [Concomitant]
  9. ACETAMINOPHEN [Concomitant]
  10. ENALAPRIL MALEATE [Concomitant]
  11. AZITHROMYCIN [Concomitant]

REACTIONS (1)
  - RASH [None]
